FAERS Safety Report 19855960 (Version 1)
Quarter: 2021Q3

REPORT INFORMATION
  Report Type: Spontaneous
  Country: US (occurrence: US)
  Receive Date: 20210920
  Receipt Date: 20210920
  Transmission Date: 20211014
  Serious: Yes (Death)
  Sender: FDA-Public Use
  Company Number: None

PATIENT
  Age: 74 Year
  Sex: Male
  Weight: 119 kg

DRUGS (1)
  1. TOCILIZUMAB (TOCILIZUMAB 20MG/ML INJ,SOLN,20ML) [Suspect]
     Active Substance: TOCILIZUMAB
     Indication: UPPER RESPIRATORY TRACT INFECTION
     Route: 042
     Dates: start: 20210825, end: 20210825

REACTIONS (11)
  - Peripheral vascular disorder [None]
  - Pneumoperitoneum [None]
  - Splenic infarction [None]
  - Coagulopathy [None]
  - Pneumomediastinum [None]
  - Multiple organ dysfunction syndrome [None]
  - QRS axis abnormal [None]
  - Pulmonary embolism [None]
  - Acute kidney injury [None]
  - Pyrexia [None]
  - Pneumothorax [None]

NARRATIVE: CASE EVENT DATE: 20210911
